FAERS Safety Report 4360103-7 (Version None)
Quarter: 2004Q2

REPORT INFORMATION
  Report Type: 
  Country: None (occurrence: None)
  Receive Date: 20040519
  Receipt Date: 20040422
  Transmission Date: 20050107
  Serious: Yes (Other)
  Sender: FDA-Public Use
  Company Number: PHBS2004NO05460

PATIENT
  Age: 48 Year
  Sex: Female

DRUGS (10)
  1. AREDIA [Suspect]
     Indication: BREAST CANCER
     Route: 065
  2. APOCILLIN [Concomitant]
     Dosage: 1320 MG 2/1
     Route: 065
  3. VOLTAREN [Concomitant]
     Dosage: 50 MG 2/1
     Route: 065
  4. ARIMIDEX [Concomitant]
     Route: 065
  5. THYROXIN-NATRIUM [Concomitant]
     Dosage: 0.1 MG/D
     Route: 065
  6. FONTEX [Concomitant]
     Dosage: 20 MG/D
     Route: 065
  7. OXYCONTIN [Concomitant]
     Dosage: 200 MG 2/1
     Route: 065
  8. KETORAX [Concomitant]
     Dosage: UNK, PRN
     Route: 065
  9. PARACET [Concomitant]
     Dosage: 1 G 2/1
     Route: 065
  10. VIVAL [Concomitant]
     Dosage: UNK, PRN
     Route: 065

REACTIONS (2)
  - ASEPTIC NECROSIS BONE [None]
  - OSTEOMYELITIS [None]
